FAERS Safety Report 6198040-8 (Version None)
Quarter: 2009Q2

REPORT INFORMATION
  Report Type: 
  Country: None (occurrence: None)
  Receive Date: 20090518
  Receipt Date: 20090501
  Transmission Date: 20091009
  Serious: No
  Sender: FDA-Public Use
  Company Number: 8032155

PATIENT
  Age: 31 Year
  Sex: Female

DRUGS (5)
  1. KEPPRA [Suspect]
     Dosage: 1500 MG
     Dates: end: 20080409
  2. KEPPRA [Suspect]
     Dosage: 500 MG
     Dates: start: 20080424
  3. VITAMIN TAB [Concomitant]
  4. FOLIC ACID [Concomitant]
  5. EFFEXOR [Concomitant]

REACTIONS (2)
  - DRUG EXPOSURE DURING PREGNANCY [None]
  - PREGNANCY [None]
